FAERS Safety Report 4390082-8 (Version None)
Quarter: 2004Q3

REPORT INFORMATION
  Report Type: 
  Country: None (occurrence: None)
  Receive Date: 20040706
  Receipt Date: 20040317
  Transmission Date: 20050211
  Serious: Yes (Hospitalization)
  Sender: FDA-Public Use
  Company Number: US-AMGEN-US069749

PATIENT
  Sex: Female

DRUGS (5)
  1. ENBREL [Suspect]
     Indication: PSORIASIS
     Route: 058
     Dates: start: 20040213, end: 20040316
  2. INDERAL [Concomitant]
     Route: 048
  3. ESTRATEST [Concomitant]
  4. NORVASC [Concomitant]
     Route: 048
  5. VITAMIN CAP [Concomitant]

REACTIONS (5)
  - ARRHYTHMIA [None]
  - DIVERTICULITIS [None]
  - DYSPNOEA [None]
  - RESPIRATORY TRACT INFECTION VIRAL [None]
  - VIRAL UPPER RESPIRATORY TRACT INFECTION [None]
